FAERS Safety Report 16496652 (Version 1)
Quarter: 2019Q2

REPORT INFORMATION
  Report Type: Spontaneous
  Country: US (occurrence: US)
  Receive Date: 20190628
  Receipt Date: 20190628
  Transmission Date: 20190711
  Serious: No
  Sender: FDA-Public Use
  Company Number: US-SA-2019SA172461

PATIENT
  Age: 81 Year
  Sex: Female

DRUGS (2)
  1. XYZAL ALLERGY 24HR [Suspect]
     Active Substance: LEVOCETIRIZINE DIHYDROCHLORIDE
     Indication: BRONCHIECTASIS
     Dosage: SHE TAKES XYZAL AT NIGHT
     Route: 065
  2. ALLEGRA [Suspect]
     Active Substance: FEXOFENADINE HYDROCHLORIDE
     Indication: BRONCHIECTASIS
     Dosage: ALLEGRA 24 HOUR IN THE MORNING
     Route: 065

REACTIONS (2)
  - Drug ineffective [Unknown]
  - Somnolence [Unknown]
